FAERS Safety Report 5599162-2 (Version None)
Quarter: 2008Q1

REPORT INFORMATION
  Report Type: 
  Country: None (occurrence: None)
  Receive Date: 20080117
  Receipt Date: 20080102
  Transmission Date: 20080703
  Serious: Yes (Hospitalization)
  Sender: FDA-Public Use
  Company Number: SPV1-2007-04015

PATIENT
  Age: 17 Year
  Sex: Male
  Weight: 62.6 kg

DRUGS (1)
  1. VYVANSE [Suspect]
     Indication: ATTENTION DEFICIT/HYPERACTIVITY DISORDER
     Dosage: 30 MG, 1X/DAY:QD, ORAL
     Route: 048
     Dates: start: 20070822, end: 20070902

REACTIONS (4)
  - CHOLELITHIASIS [None]
  - HEADACHE [None]
  - PANCREATITIS [None]
  - PELVIC FLUID COLLECTION [None]
